FAERS Safety Report 17949515 (Version 2)
Quarter: 2020Q3

REPORT INFORMATION
  Report Type: Spontaneous
  Country: US (occurrence: US)
  Receive Date: 20200626
  Receipt Date: 20200706
  Transmission Date: 20201103
  Serious: Yes (Other)
  Sender: FDA-Public Use
  Company Number: US-JNJFOC-20200629810

PATIENT

DRUGS (1)
  1. REMICADE [Suspect]
     Active Substance: INFLIXIMAB
     Indication: CROHN^S DISEASE
     Route: 042
     Dates: end: 201912

REACTIONS (6)
  - Night sweats [Unknown]
  - Off label use [Unknown]
  - Gingival swelling [Unknown]
  - Drug ineffective [Unknown]
  - Product use issue [Unknown]
  - Crohn^s disease [Unknown]
